FAERS Safety Report 4813314-8 (Version None)
Quarter: 2005Q4

REPORT INFORMATION
  Report Type: 
  Country: None (occurrence: None)
  Receive Date: 20051026
  Receipt Date: 20051010
  Transmission Date: 20060501
  Serious: Yes (Other)
  Sender: FDA-Public Use
  Company Number: US_0509121484

PATIENT
  Age: 85 Year
  Sex: Female
  Weight: 75 kg

DRUGS (15)
  1. FORTEO [Suspect]
     Indication: OSTEOPOROSIS
     Dosage: 20 UG DAY
     Dates: start: 20050314, end: 20050726
  2. CELEBREX [Concomitant]
  3. LASIX [Concomitant]
  4. KCL (POTASSIUM CHLORIDE) [Concomitant]
  5. SYNTHROID [Concomitant]
  6. ZYRTEC [Concomitant]
  7. ACETYLSALICYLIC ACID SRT [Concomitant]
  8. NORFLEX [Concomitant]
  9. DIGITALIS [Concomitant]
  10. PROTONIX [Concomitant]
  11. PREMARIN [Concomitant]
  12. DILTIAZEM CD (DILTIAZEM HYDROCHLORIDE) [Concomitant]
  13. LOTENSIN [Concomitant]
  14. TUMS E-X EXTRA STRENGTH (CALCIUM CARBONATE) [Concomitant]
  15. M.V.I. [Concomitant]

REACTIONS (1)
  - OSTEITIS DEFORMANS [None]
